FAERS Safety Report 10312883 (Version 2)
Quarter: 2015Q1

REPORT INFORMATION
  Report Type: Spontaneous
  Country: US (occurrence: US)
  Receive Date: 20140718
  Receipt Date: 20150115
  Transmission Date: 20150720
  Serious: No
  Sender: FDA-Public Use
  Company Number: US-PFIZER INC-2014196227

PATIENT
  Age: 67 Year
  Sex: Female
  Weight: 61.68 kg

DRUGS (41)
  1. OXYCONTIN [Suspect]
     Active Substance: OXYCODONE HYDROCHLORIDE
     Dosage: 10 MG, 2X/DAY
  2. PLAQUENIL [Concomitant]
     Active Substance: HYDROXYCHLOROQUINE SULFATE
     Dosage: 200 MG, TAKE 2 TABLET DAILY
     Route: 048
  3. NITROSTAT [Concomitant]
     Active Substance: NITROGLYCERIN
     Indication: CHEST PAIN
     Dosage: 0.4 MG, PLACE 1 TAB UNDER THE TOUNGE EVERY 5 MINUTES AS NEEDED
     Route: 060
  4. SYNTHROID [Concomitant]
     Active Substance: LEVOTHYROXINE SODIUM
     Dosage: 50 UG, DAILY
     Route: 048
  5. WELLBUTRIN SR [Concomitant]
     Active Substance: BUPROPION HYDROCHLORIDE
     Dosage: 100 MG, DAILY
     Route: 048
  6. MICRO-K [Concomitant]
     Active Substance: POTASSIUM CHLORIDE
     Dosage: 10 MEQ, TAKE BY MOUTH 2 TIMES DAILY
     Route: 048
  7. VITAMIN B12 [Concomitant]
     Active Substance: CYANOCOBALAMIN
     Dosage: UNK
     Route: 048
  8. VITAMIN E [Concomitant]
     Active Substance: .ALPHA.-TOCOPHEROL
     Dosage: 100 IU, DAILY
     Route: 048
  9. PRILOSEC [Concomitant]
     Active Substance: OMEPRAZOLE MAGNESIUM
     Dosage: 40 MG, DAILY
     Route: 048
  10. DURAGESIC [Concomitant]
     Active Substance: FENTANYL
     Dosage: 100 MCG/HR, (PLACE 1 PATCH ONTO THE SKIN EVERY 72 HOURS)
     Route: 061
  11. TOPROL XL [Concomitant]
     Active Substance: METOPROLOL SUCCINATE
     Dosage: 25 MG, 1 TABLET BY MOUTH DAILY
     Route: 048
  12. STOOL SOFTENER [Concomitant]
     Active Substance: DOCUSATE CALCIUM
     Dosage: UNK
     Route: 048
  13. CITRACAL + D [Concomitant]
     Active Substance: CALCIUM CITRATE\VITAMIN D
     Dosage: UNK, DAILY
     Route: 048
  14. FOLVITE [Concomitant]
     Active Substance: FOLIC ACID
     Dosage: 1 MG, TAKE 1 MG 2 TIMES DAILY
     Route: 048
  15. KEFLEX [Concomitant]
     Active Substance: CEPHALEXIN
     Dosage: 500 MG, 4X/DAY (TAKE 1 CAPSULE BY MOUTH EVERY 6 HOURS)
     Route: 048
  16. WELLBUTRIN XL [Concomitant]
     Active Substance: BUPROPION HYDROCHLORIDE
     Dosage: 150 MG, DAILY (TAKE 1 TABLET BY MOUTH EVERY MORNING)
     Route: 048
  17. LYRICA [Suspect]
     Active Substance: PREGABALIN
     Dosage: 25 MG, 2X/DAY
     Route: 048
  18. RECLAST [Concomitant]
     Active Substance: ZOLEDRONIC ACID
     Dosage: UNK, (INJECT INTO THE VEIN ANNUALLY)
     Route: 042
  19. LOVENOX [Concomitant]
     Active Substance: ENOXAPARIN SODIUM
     Dosage: 60 MG, 2X/DAY (60MG EVERY 12 HOURS)
  20. REGLAN [Concomitant]
     Active Substance: METOCLOPRAMIDE HYDROCHLORIDE
     Dosage: 5 MG, BEFORE MEALS
  21. ACIDOPHILUS [Concomitant]
     Active Substance: LACTOBACILLUS ACIDOPHILUS
     Dosage: UNK
     Route: 048
  22. LASIX [Concomitant]
     Active Substance: FUROSEMIDE
     Dosage: 40 MG, DAILY
     Route: 048
  23. SALAGEN [Concomitant]
     Active Substance: PILOCARPINE HYDROCHLORIDE
     Dosage: 5 MG, 3X/DAY
     Route: 048
  24. LOVENOX [Concomitant]
     Active Substance: ENOXAPARIN SODIUM
     Dosage: 60 UNK, UNK (INJECT 60MG INTO THE SKIN OF ABDOMEN EVERY 12 HOURS AS DIRECTED)
  25. ECOTRIN [Concomitant]
     Active Substance: ASPIRIN
     Dosage: 81 MG, DAILY
     Route: 048
  26. ARAVA [Concomitant]
     Active Substance: LEFLUNOMIDE
     Dosage: 20 MG, DAILY
     Route: 048
  27. COUMADIN [Concomitant]
     Active Substance: WARFARIN SODIUM
     Dosage: 5 MG, UNK
     Route: 048
  28. SINEQUAN [Concomitant]
     Active Substance: DOXEPIN HYDROCHLORIDE
     Dosage: 200 MG, 1X/DAY (50MG NIGHTLY, TAKES FOUR))
     Route: 048
  29. NEURONTIN [Concomitant]
     Active Substance: GABAPENTIN
     Dosage: 300 MG, TAKE 2 CAPSULES THREE TIMES DAILY
  30. DELTASONE [Concomitant]
     Active Substance: PREDNISONE
     Dosage: 5 MG, 1 TO 4 TABLETS BY MOUTH AS NEEDED FOR ACUTE FLARE THEN TAKE ONE TAB BY MOUTH EACH DAY)
     Route: 048
  31. ZANTAC [Concomitant]
     Active Substance: RANITIDINE HYDROCHLORIDE
     Dosage: 150 MG, 2 TIMES DAILY
     Route: 048
  32. LYRICA [Suspect]
     Active Substance: PREGABALIN
     Dosage: 50 MG, 3X/DAY
     Route: 048
  33. OXYCONTIN [Suspect]
     Active Substance: OXYCODONE HYDROCHLORIDE
     Dosage: 10 MG, 1X/DAY AT NIGHT
  34. CIMZIA [Concomitant]
     Active Substance: CERTOLIZUMAB PEGOL
     Dosage: 400 MG, UNK (400MG WEEKS 0, 2 AND 4. THEN 400MG EVERY 4 WEEKS)
     Route: 058
  35. PROTONIX [Concomitant]
     Active Substance: PANTOPRAZOLE SODIUM
     Dosage: 40 MG, TAKE 1 TABLET 2 TIMES DAILY
     Route: 048
  36. FISH OIL/OMEGA-3 TRIGLYCERIDES/TOCOPHEROL [Concomitant]
     Dosage: 1000 MG, UNK
     Route: 048
  37. OXYCONTIN [Suspect]
     Active Substance: OXYCODONE HYDROCHLORIDE
     Dosage: 10MG CR TABLET 2 TABLETS IN THE MORNING AND ONE 40 MG TABLET AT NIGHT
  38. OXYCONTIN [Suspect]
     Active Substance: OXYCODONE HYDROCHLORIDE
     Dosage: 20 MG, 2X/DAY
  39. OXY-IR [Suspect]
     Active Substance: OXYCODONE HYDROCHLORIDE
     Indication: PAIN
     Dosage: 30 MG, EVERY 4 HRS AS NEEDED
     Route: 048
  40. MICRO-K [Concomitant]
     Active Substance: POTASSIUM CHLORIDE
     Dosage: 10 MEQ, DAILY (TAKE 1 CAPSULE BY MOUTH DAILY)
     Route: 048
  41. ERGOCALCIFEROL. [Concomitant]
     Active Substance: ERGOCALCIFEROL
     Dosage: 50000 IU, ONCE A WEEK
     Route: 048

REACTIONS (1)
  - Joint swelling [Unknown]
